FAERS Safety Report 23512416 (Version 1)
Quarter: 2024Q1

REPORT INFORMATION
  Report Type: Spontaneous
  Country: US (occurrence: None)
  Receive Date: 20240209
  Receipt Date: 20240209
  Transmission Date: 20240410
  Serious: No
  Sender: FDA-Public Use
  Company Number: None

PATIENT
  Age: 41 Year
  Sex: Female
  Weight: 81 kg

DRUGS (1)
  1. HYPERRAB [Suspect]
     Active Substance: HUMAN RABIES VIRUS IMMUNE GLOBULIN
     Indication: Rabies
     Dosage: OTHER QUANTITY : 1620 1620 UNITS TOTAL;?OTHER ROUTE : INJECTED INTO R + L GLUTE;?
     Route: 050
     Dates: start: 20240108, end: 20240108

REACTIONS (5)
  - Animal bite [None]
  - Animal scratch [None]
  - Product communication issue [None]
  - Wrong technique in product usage process [None]
  - Intentional product use issue [None]

NARRATIVE: CASE EVENT DATE: 20240108
